FAERS Safety Report 16856988 (Version 1)
Quarter: 2019Q3

REPORT INFORMATION
  Report Type: Spontaneous
  Country: US (occurrence: US)
  Receive Date: 20190926
  Receipt Date: 20190926
  Transmission Date: 20191005
  Serious: No
  Sender: FDA-Public Use
  Company Number: US-FOUNDATIONCONSUMERHC-2019-US-012666

PATIENT
  Sex: Female

DRUGS (1)
  1. PLAN B ONE-STEP [Suspect]
     Active Substance: LEVONORGESTREL
     Indication: PRODUCT USED FOR UNKNOWN INDICATION
     Dosage: 1.5MG X 2 DOSES
     Dates: start: 20190630, end: 20190705

REACTIONS (4)
  - Abdominal distension [Unknown]
  - Abdominal pain [Unknown]
  - Flatulence [Unknown]
  - Gastrooesophageal reflux disease [Unknown]
